FAERS Safety Report 8798846 (Version 1)
Quarter: 2012Q4

REPORT INFORMATION
  Report Type: 
  Country: US (occurrence: US)
  Receive Date: 20120920
  Receipt Date: 20120920
  Transmission Date: 20130627
  Serious: Yes (Death)
  Sender: FDA-Public Use
  Company Number: US-GLAXOSMITHKLINE-A0994040A

PATIENT
  Age: 0 Year
  Sex: Female

DRUGS (1)
  1. PAXIL [Suspect]
     Indication: PRODUCT USED FOR UNKNOWN INDICATION
     Route: 064

REACTIONS (7)
  - Death [Fatal]
  - Respiratory distress [Unknown]
  - Pneumothorax [Unknown]
  - Hypoperfusion [Unknown]
  - Sepsis [Unknown]
  - Premature baby [Unknown]
  - Foetal exposure during pregnancy [Unknown]
